FAERS Safety Report 9853418 (Version 1)
Quarter: 2014Q1

REPORT INFORMATION
  Report Type: Spontaneous
  Country: US (occurrence: US)
  Receive Date: 20140129
  Receipt Date: 20140129
  Transmission Date: 20141002
  Serious: No
  Sender: FDA-Public Use
  Company Number: US-BAXTER-2014BAX003022

PATIENT
  Sex: Female

DRUGS (4)
  1. GAMMAGARD LIQUID [Suspect]
     Indication: SELECTIVE IGG SUBCLASS DEFICIENCY
     Route: 058
     Dates: start: 2013
  2. GAMMAGARD LIQUID [Suspect]
     Route: 058
     Dates: start: 201310
  3. SYNTHROID [Concomitant]
     Indication: PRODUCT USED FOR UNKNOWN INDICATION
  4. ZOLOFT [Concomitant]
     Indication: PRODUCT USED FOR UNKNOWN INDICATION

REACTIONS (2)
  - Thyroglobulin increased [Unknown]
  - Anti-thyroid antibody positive [Unknown]
